FAERS Safety Report 6900577-8 (Version None)
Quarter: 2010Q3

REPORT INFORMATION
  Report Type: 
  Country: None (occurrence: None)
  Receive Date: 20100803
  Receipt Date: 20100721
  Transmission Date: 20110219
  Serious: Yes (Hospitalization)
  Sender: FDA-Public Use
  Company Number: US-ELI_LILLY_AND_COMPANY-US201007006402

PATIENT
  Age: 85 Year
  Sex: Female

DRUGS (13)
  1. FORTEO [Suspect]
     Indication: OSTEOPOROSIS
     Dosage: 20 UG, DAILY (1/D)
     Dates: end: 20100709
  2. COZAAR [Concomitant]
     Dosage: 50 MG, DAILY (1/D)
  3. VALTREX [Concomitant]
     Indication: HERPES ZOSTER
  4. ELAVIL [Concomitant]
     Indication: BLADDER DISORDER
     Dosage: 25 MG, EACH EVENING
  5. ELAVIL [Concomitant]
     Dosage: 50 MG, EACH EVENING
  6. AMBIEN [Concomitant]
     Dosage: 5 MG, EACH EVENING
  7. MOBIC [Concomitant]
  8. ASPIRIN [Concomitant]
     Dosage: 81 MG, DAILY (1/D)
  9. ASPIRIN [Concomitant]
     Dosage: 325 MG, DAILY (1/D)
  10. OS-CAL [Concomitant]
     Dosage: 500 MG, 2/D
  11. FISH OIL [Concomitant]
     Dosage: 1000 MG, DAILY (1/D)
  12. COQ10 [Concomitant]
     Dosage: 100 MG, DAILY (1/D)
  13. PEPCID [Concomitant]
     Dosage: 40 MG, DAILY (1/D)

REACTIONS (7)
  - ACCIDENTAL OVERDOSE [None]
  - ACUTE MYOCARDIAL INFARCTION [None]
  - CORONARY ARTERY STENOSIS [None]
  - DEPRESSION [None]
  - ELECTROLYTE IMBALANCE [None]
  - LUNG NEOPLASM [None]
  - RALES [None]
